FAERS Safety Report 17623270 (Version 1)
Quarter: 2020Q2

REPORT INFORMATION
  Report Type: Spontaneous
  Country: US (occurrence: US)
  Receive Date: 20200403
  Receipt Date: 20200403
  Transmission Date: 20200713
  Serious: Yes (Life-Threatening)
  Sender: FDA-Public Use
  Company Number: None

PATIENT
  Age: 64 Year
  Sex: Male

DRUGS (1)
  1. CARVEDILOL FOR COREG 6.25 [Suspect]
     Active Substance: CARVEDILOL
     Indication: HYPERTENSION
     Dosage: ?          QUANTITY:360 TABLET(S);?
     Route: 048
     Dates: start: 20200401, end: 20200402

REACTIONS (6)
  - Hyperhidrosis [None]
  - Heart rate increased [None]
  - Feeling hot [None]
  - Blood pressure increased [None]
  - Product substitution issue [None]
  - Oxygen saturation decreased [None]

NARRATIVE: CASE EVENT DATE: 20200401
